FAERS Safety Report 6250629-3 (Version None)
Quarter: 2009Q2

REPORT INFORMATION
  Report Type: 
  Country: None (occurrence: None)
  Receive Date: 20090626
  Receipt Date: 20090619
  Transmission Date: 20091009
  Serious: Yes (Death)
  Sender: FDA-Public Use
  Company Number: 2009JP003842

PATIENT
  Sex: Male

DRUGS (3)
  1. TACROLIMUS [Suspect]
  2. METHYLPREDNISOLONE [Suspect]
  3. AZATHIOPRINE [Suspect]

REACTIONS (3)
  - HISTIOCYTOSIS HAEMATOPHAGIC [None]
  - MULTI-ORGAN FAILURE [None]
  - SEPSIS [None]
